FAERS Safety Report 8538888-5 (Version None)
Quarter: 2012Q3

REPORT INFORMATION
  Report Type: 
  Country: None (occurrence: None)
  Receive Date: 20120726
  Receipt Date: 20120713
  Transmission Date: 20120928
  Serious: Yes (Hospitalization, Other)
  Sender: FDA-Public Use
  Company Number: JP-PFIZER INC-2012031755

PATIENT
  Age: 33 Year
  Sex: Female
  Weight: 72 kg

DRUGS (4)
  1. VOLTAREN [Suspect]
     Indication: ARTHRALGIA
     Dosage: 50 MG, UID/QD
     Route: 054
     Dates: start: 20111215, end: 20111219
  2. CELEBREX [Suspect]
     Indication: ARTHRALGIA
     Dosage: 200 MG, 2X/DAY
     Route: 048
     Dates: start: 20111219, end: 20111219
  3. CELEBREX [Suspect]
     Indication: OROPHARYNGEAL PAIN
  4. VOLTAREN [Suspect]
     Indication: OROPHARYNGEAL PAIN

REACTIONS (3)
  - PLEURISY [None]
  - HEPATIC FUNCTION ABNORMAL [None]
  - MENINGITIS ASEPTIC [None]
